FAERS Safety Report 10633789 (Version 2)
Quarter: 2015Q1

REPORT INFORMATION
  Report Type: Spontaneous
  Country: NO (occurrence: NO)
  Receive Date: 20141205
  Receipt Date: 20150209
  Transmission Date: 20150720
  Serious: Yes (Hospitalization, Other)
  Sender: FDA-Public Use
  Company Number: NO-JNJFOC-20141201267

PATIENT
  Age: 0 Year
  Sex: Male
  Weight: 3.38 kg

DRUGS (6)
  1. ALBYL-E [Concomitant]
     Active Substance: ASPIRIN\MAGNESIUM OXIDE
     Route: 064
     Dates: start: 2014, end: 2014
  2. TRAMADOL HYDROCHLORIDE. [Suspect]
     Active Substance: TRAMADOL HYDROCHLORIDE
     Indication: PRODUCT USED FOR UNKNOWN INDICATION
     Route: 064
     Dates: start: 2014, end: 2014
  3. CLONAZEPAM. [Suspect]
     Active Substance: CLONAZEPAM
     Indication: PRODUCT USED FOR UNKNOWN INDICATION
     Route: 064
  4. FRAGMIN [Concomitant]
     Active Substance: DALTEPARIN SODIUM
     Route: 064
     Dates: start: 2014, end: 2014
  5. PERSANTIN [Concomitant]
     Active Substance: DIPYRIDAMOLE
     Route: 064
     Dates: start: 2014, end: 2014
  6. PENICILLIN [Concomitant]
     Active Substance: PENICILLIN
     Route: 064
     Dates: start: 201410, end: 201410

REACTIONS (6)
  - Drug withdrawal syndrome neonatal [Recovering/Resolving]
  - Oxygen saturation decreased [Recovered/Resolved]
  - Foetal exposure during pregnancy [Recovered/Resolved]
  - Feeding disorder neonatal [Recovered/Resolved]
  - Respiratory rate increased [Recovered/Resolved]
  - Hypoglycaemia [Recovered/Resolved]

NARRATIVE: CASE EVENT DATE: 2014
